FAERS Safety Report 9286205 (Version 3)
Quarter: 2013Q3

REPORT INFORMATION
  Report Type: Spontaneous
  Country: US (occurrence: US)
  Receive Date: 20130513
  Receipt Date: 20130829
  Transmission Date: 20140515
  Serious: Yes (Other)
  Sender: FDA-Public Use
  Company Number: US-GLAXOSMITHKLINE-A1022503A

PATIENT
  Age: 68 Year
  Sex: Male

DRUGS (5)
  1. AVANDIA [Suspect]
     Indication: TYPE 2 DIABETES MELLITUS
     Dosage: 4MG PER DAY
     Route: 048
     Dates: start: 2008, end: 200810
  2. PLAVIX [Concomitant]
  3. COREG [Concomitant]
  4. METFORMIN [Concomitant]
  5. LIPITOR [Concomitant]

REACTIONS (6)
  - Coronary artery bypass [Unknown]
  - Coronary artery occlusion [Unknown]
  - Coronary artery disease [Unknown]
  - Palpitations [Unknown]
  - Extrasystoles [Unknown]
  - Myocardial infarction [Unknown]
